FAERS Safety Report 9720796 (Version 2)
Quarter: 2013Q4

REPORT INFORMATION
  Report Type: Report from Study
  Country: IT (occurrence: IT)
  Receive Date: 20131129
  Receipt Date: 20131220
  Transmission Date: 20140711
  Serious: Yes (Hospitalization)
  Sender: FDA-Public Use
  Company Number: IT-ROCHE-1307884

PATIENT
  Age: 51 Year
  Sex: Female
  Weight: 62 kg

DRUGS (4)
  1. RHUPH20/TRASTUZUMAB [Suspect]
     Indication: BREAST CANCER
     Dosage: ROUTE: SUBCUTANEOUS SID, LOADING DOSE, LAST DOSE ON 31/OCT/2013
     Route: 058
     Dates: start: 20130807, end: 20131115
  2. CYCLOPHOSPHAMIDE [Suspect]
     Indication: BREAST CANCER
     Route: 065
  3. METHOTREXATE [Suspect]
     Indication: BREAST CANCER
     Route: 065
  4. FLUOROURACIL [Suspect]
     Indication: BREAST CANCER
     Route: 065

REACTIONS (1)
  - Pulmonary embolism [Recovered/Resolved]
